FAERS Safety Report 20443072 (Version 5)
Quarter: 2022Q1

REPORT INFORMATION
  Report Type: Other
  Country: GB (occurrence: GB)
  Receive Date: 20220208
  Receipt Date: 20220228
  Transmission Date: 20220423
  Serious: Yes (Life-Threatening, Hospitalization, Disabling, Other)
  Sender: FDA-Public Use
  Company Number: GB-STRIDES ARCOLAB LIMITED-2011SP000375

PATIENT
  Age: 31 Year
  Sex: Female
  Weight: 63.5 kg

DRUGS (111)
  1. DIAZEPAM [Interacting]
     Active Substance: DIAZEPAM
     Indication: Serotonin syndrome
     Dosage: 8 MILLIGRAM, 24 HOURS, TABLET ((5 MG QDS AND NOW ON 2-2-4 MG)
     Route: 048
  2. DIAZEPAM [Interacting]
     Active Substance: DIAZEPAM
     Indication: Muscle spasms
     Dosage: 20 MILLIGRAM, QD 5 MILLIGRAM, QID, 5 MG QID (5 MG QDS AND NOW ON 2-2-4 MG)
     Route: 048
  3. DIAZEPAM [Interacting]
     Active Substance: DIAZEPAM
     Indication: Depression
     Dosage: 80 MILLIGRAM, PER DAY (TABLET)
     Route: 065
  4. DIAZEPAM [Interacting]
     Active Substance: DIAZEPAM
     Indication: Analgesic therapy
     Dosage: 5 MILLIGRAM, TABLET
     Route: 048
  5. DIAZEPAM [Interacting]
     Active Substance: DIAZEPAM
     Dosage: 8 MILLIGRAM, TABLET
     Route: 048
  6. DIAZEPAM [Interacting]
     Active Substance: DIAZEPAM
     Dosage: UNK, TABLET
     Route: 065
  7. DIAZEPAM [Interacting]
     Active Substance: DIAZEPAM
     Dosage: UNK, QD ((5 MG QDS AND NOW ON 2-2-4 MG)
     Route: 048
  8. DIAZEPAM [Interacting]
     Active Substance: DIAZEPAM
     Dosage: 20 MILLIGRAM; PER DAY
     Route: 048
  9. DIAZEPAM [Interacting]
     Active Substance: DIAZEPAM
     Dosage: UNK; TABLET
     Route: 065
  10. DIAZEPAM [Interacting]
     Active Substance: DIAZEPAM
     Dosage: 8 MILLIGRAM, QD
     Route: 048
  11. TRAMADOL [Interacting]
     Active Substance: TRAMADOL
     Indication: Back pain
     Dosage: 5 MILLIGRAM, QD
     Route: 048
     Dates: start: 1995, end: 1996
  12. TRAMADOL [Interacting]
     Active Substance: TRAMADOL
     Indication: Neck pain
     Dosage: 50-100 MILLIGRAMS QID
     Route: 048
  13. TRAMADOL [Interacting]
     Active Substance: TRAMADOL
     Indication: Analgesic therapy
     Dosage: 4 (CYCLICAL),50-100 MILLIGRAMS, QD
     Route: 048
  14. TRAMADOL [Interacting]
     Active Substance: TRAMADOL
     Indication: Oculogyric crisis
     Dosage: 5 MILLIGRAM PER DAY
     Route: 044
  15. TRAMADOL [Interacting]
     Active Substance: TRAMADOL
     Indication: Muscle spasms
     Dosage: 8 MILLIGRAM, PER DAY
     Route: 048
  16. TRAMADOL [Interacting]
     Active Substance: TRAMADOL
     Dosage: UNK, 4 PER DAY
     Route: 065
  17. TRAMADOL [Interacting]
     Active Substance: TRAMADOL
     Dosage: 20 MILLIGRAM PER DAY (5 MG , 4 TIMES DAY)
     Route: 065
  18. TRAMADOL [Interacting]
     Active Substance: TRAMADOL
     Dosage: UNK, 2008/2009, DRUG START/DRUG WITHDRAWN
     Route: 048
  19. TRAMADOL [Interacting]
     Active Substance: TRAMADOL
     Dosage: UNK
     Route: 065
  20. TRAMADOL [Interacting]
     Active Substance: TRAMADOL
     Dosage: UNK
     Route: 048
  21. TRAMADOL [Interacting]
     Active Substance: TRAMADOL
     Dosage: 4 DOSAGE FORM, QD
     Route: 065
  22. TRAMADOL [Interacting]
     Active Substance: TRAMADOL
     Dosage: 1 DOSAGE FORM, (1 DOSAGE FORM, QD (5 MG QDS AND NOW ON 2-2-4 MG))
     Route: 065
  23. TRAMADOL [Interacting]
     Active Substance: TRAMADOL
     Dosage: UNK, 4 CYCLICAL QD (50-100 MG)
     Route: 048
  24. TRAMADOL [Interacting]
     Active Substance: TRAMADOL
     Dosage: UNK; PER DAY DISCONTINUED AFTER 4 OR 5 DAYS
     Route: 048
  25. TRAMADOL [Interacting]
     Active Substance: TRAMADOL
     Dosage: 5 MILLIGRAM, UNK
     Route: 065
  26. TRAMADOL [Interacting]
     Active Substance: TRAMADOL
     Dosage: UNK, (4 OT, QD)
     Route: 048
  27. TRAMADOL [Interacting]
     Active Substance: TRAMADOL
     Dosage: 4 DOSAGE FORM, UNK
     Route: 048
  28. PROCYCLIDINE [Interacting]
     Active Substance: PROCYCLIDINE
     Indication: Extrapyramidal disorder
     Dosage: 5 MILLIGRAM, Q24H
     Route: 048
  29. PROCYCLIDINE [Interacting]
     Active Substance: PROCYCLIDINE
     Indication: Oculogyric crisis
     Dosage: UNK
     Route: 065
  30. PROCYCLIDINE [Interacting]
     Active Substance: PROCYCLIDINE
     Indication: Psychotic symptom
     Dosage: 20 MILLIGRAM, UNK
     Route: 048
  31. PROCYCLIDINE [Interacting]
     Active Substance: PROCYCLIDINE
     Dosage: 15 MILLIGRAM, QD, 24 HOURS
     Route: 048
  32. PROCYCLIDINE [Interacting]
     Active Substance: PROCYCLIDINE
     Dosage: 5 MILLIGRAM, QD
     Route: 048
  33. PROCYCLIDINE [Interacting]
     Active Substance: PROCYCLIDINE
     Dosage: 5 MILLIGRAM, TID (15 MG, QD)
     Route: 048
  34. PROCYCLIDINE [Interacting]
     Active Substance: PROCYCLIDINE
     Dosage: 20 MILLIGRAM, QD
     Route: 048
  35. PROCYCLIDINE [Interacting]
     Active Substance: PROCYCLIDINE
     Dosage: 5 MILLIGRAM, QD
     Route: 048
     Dates: start: 1995, end: 1995
  36. PROCYCLIDINE [Interacting]
     Active Substance: PROCYCLIDINE
     Dosage: 20 MILLIGRAM, PER DAY
     Route: 065
  37. PROCYCLIDINE [Interacting]
     Active Substance: PROCYCLIDINE
     Dosage: 5 MILLIGRAM, PER DAY
     Route: 048
     Dates: start: 1995, end: 1996
  38. PROCYCLIDINE [Interacting]
     Active Substance: PROCYCLIDINE
     Dosage: 20 MILLIGRAM, UNK
     Route: 048
  39. PROCYCLIDINE [Interacting]
     Active Substance: PROCYCLIDINE
     Dosage: 5 MILLIGRAM, TID
     Route: 065
  40. PROCYCLIDINE [Interacting]
     Active Substance: PROCYCLIDINE
     Dosage: 15 MILLIGRAM, TID
     Route: 048
  41. DOMPERIDONE [Interacting]
     Active Substance: DOMPERIDONE
     Indication: Product used for unknown indication
     Dosage: UNK, TABLET
     Route: 065
  42. DOMPERIDONE [Interacting]
     Active Substance: DOMPERIDONE
     Dosage: UNK, TABLET
     Route: 048
  43. DOMPERIDONE [Interacting]
     Active Substance: DOMPERIDONE
     Dosage: UNK, EFFERVESCENT TABLET
     Route: 048
  44. DOMPERIDONE [Interacting]
     Active Substance: DOMPERIDONE
     Dosage: UNK
     Route: 065
  45. DOMPERIDONE [Interacting]
     Active Substance: DOMPERIDONE
     Dosage: UNK, TABLET
     Route: 048
  46. DOMPERIDONE [Interacting]
     Active Substance: DOMPERIDONE
     Dosage: UNK
     Route: 048
  47. OMEPRAZOLE [Interacting]
     Active Substance: OMEPRAZOLE
     Indication: Dyspepsia
     Dosage: 20 MG, QD, 24 HOUR, CUMULATIVE DOSE (61319.17 MG)
     Route: 065
  48. OMEPRAZOLE [Interacting]
     Active Substance: OMEPRAZOLE
     Dosage: 20 MILLIGRAM, QD, CUMULATIVE DOSE (61319.17 MG)
     Route: 048
  49. OMEPRAZOLE [Interacting]
     Active Substance: OMEPRAZOLE
     Dosage: 20 MILLIGRAM, QD,  CUMULATIVE DOSE (10179.167MG)
     Route: 065
  50. CLONAZEPAM [Interacting]
     Active Substance: CLONAZEPAM
     Indication: Sedation
     Dosage: UNK, UNSURE (THERAPY END FLAG: DRUG NO LONGER ADMINISTERED)(TABLET)
     Route: 048
  51. CLONAZEPAM [Interacting]
     Active Substance: CLONAZEPAM
     Dosage: UNK (UNSURE)(TABLET)
     Route: 048
  52. AMITRIPTYLINE [Interacting]
     Active Substance: AMITRIPTYLINE
     Indication: Muscle spasms
     Dosage: 25 MG, QD, AT NIGHT (TABLET)
     Route: 065
  53. AMITRIPTYLINE [Interacting]
     Active Substance: AMITRIPTYLINE
     Indication: Serotonin syndrome
     Dosage: UNK, TABLET
     Route: 065
  54. AMITRIPTYLINE [Interacting]
     Active Substance: AMITRIPTYLINE
     Indication: Neuralgia
     Dosage: UNK, QD
     Route: 065
  55. AMITRIPTYLINE [Interacting]
     Active Substance: AMITRIPTYLINE
     Indication: Drug withdrawal syndrome
     Dosage: UNK, PER DAY
     Route: 065
  56. AMITRIPTYLINE [Interacting]
     Active Substance: AMITRIPTYLINE
     Dosage: UNK, AT NIGHT, PER DAY
     Route: 065
  57. AMITRIPTYLINE [Interacting]
     Active Substance: AMITRIPTYLINE
     Dosage: UNK UNK, QD
     Route: 065
  58. AMITRIPTYLINE [Interacting]
     Active Substance: AMITRIPTYLINE
     Dosage: UNK, AT NIGHT , ONE
     Route: 065
  59. AMITRIPTYLINE [Interacting]
     Active Substance: AMITRIPTYLINE
     Dosage: 20 MILLIGRAM, QD, CAPSULE
     Route: 065
  60. AMITRIPTYLINE [Interacting]
     Active Substance: AMITRIPTYLINE
     Dosage: UNK; TABLET
     Route: 065
  61. LORAZEPAM [Interacting]
     Active Substance: LORAZEPAM
     Indication: Sedation
     Dosage: 4 MILLIGRAM, QD (1 MILLIGRAM QID)
     Route: 048
  62. LORAZEPAM [Interacting]
     Active Substance: LORAZEPAM
     Indication: Muscle spasms
     Dosage: 4 MILLIGRAM, QID (1 MILLIGRAM QD)
     Route: 048
  63. LORAZEPAM [Interacting]
     Active Substance: LORAZEPAM
     Dosage: 1 MILLIGRAM, UNK
     Route: 048
  64. LORAZEPAM [Interacting]
     Active Substance: LORAZEPAM
     Dosage: 1 MILLIGRAM, UNK
     Route: 048
  65. LORAZEPAM [Interacting]
     Active Substance: LORAZEPAM
     Dosage: UNK, QD TABLET
     Route: 048
  66. LORAZEPAM [Interacting]
     Active Substance: LORAZEPAM
     Dosage: 16 MILLIGRAM, QD
     Route: 048
  67. LORAZEPAM [Interacting]
     Active Substance: LORAZEPAM
     Dosage: 1 MILLIGRAM, UNK
     Route: 048
  68. LORAZEPAM [Interacting]
     Active Substance: LORAZEPAM
     Dosage: 1 MILLIGRAM; UNK
     Route: 048
  69. LORAZEPAM [Interacting]
     Active Substance: LORAZEPAM
     Dosage: 4 MILLIGRAM; UNK (2 DOSES); TABLET
     Route: 048
  70. LORAZEPAM [Interacting]
     Active Substance: LORAZEPAM
     Dosage: 1 MILLIGRAM; UNK TABLET
     Route: 048
  71. LORAZEPAM [Interacting]
     Active Substance: LORAZEPAM
     Dosage: 4 MILLIGRAM; UNK TABLET
     Route: 048
  72. LORAZEPAM [Interacting]
     Active Substance: LORAZEPAM
     Dosage: 4 MILLIGRAM, QID; TABLET
     Route: 048
  73. LORAZEPAM [Interacting]
     Active Substance: LORAZEPAM
     Dosage: 1 MILLIGRAM, QID; TABLET
     Route: 048
  74. LORAZEPAM [Interacting]
     Active Substance: LORAZEPAM
     Dosage: 4 MILLIGRAM, QD; TABLET
     Route: 048
  75. MIRTAZAPINE [Interacting]
     Active Substance: MIRTAZAPINE
     Indication: Depression
     Dosage: 30 MILLIGRAM, QD
     Route: 048
  76. MIRTAZAPINE [Interacting]
     Active Substance: MIRTAZAPINE
     Indication: Psychotic disorder
     Dosage: 30 MG, QD (UNSURE)
     Route: 048
  77. MIRTAZAPINE [Interacting]
     Active Substance: MIRTAZAPINE
     Dosage: 30MG IN THE DAY AND 15MG AT NIGHT
     Route: 065
  78. MIRTAZAPINE [Interacting]
     Active Substance: MIRTAZAPINE
     Dosage: 30 MILLIGRAM IN THE DAY AND 15MG AT NIGHT
     Route: 048
  79. MIRTAZAPINE [Interacting]
     Active Substance: MIRTAZAPINE
     Dosage: UNK
     Route: 065
  80. MIRTAZAPINE [Interacting]
     Active Substance: MIRTAZAPINE
     Dosage: 15 MILLIGRAM, 30MG IN THE DAY AND 15MG AT NIGHT, CUMULATIVE DOSE (44640.0 MG)
     Route: 065
  81. MIRTAZAPINE [Interacting]
     Active Substance: MIRTAZAPINE
     Dosage: 15 MG, QD (30MG IN THE DAY AND 15MG AT NIGHT) CUMULATIVE DOSE (1410 MG)(TABLET)
     Route: 065
  82. MIRTAZAPINE [Interacting]
     Active Substance: MIRTAZAPINE
     Dosage: UNK, (TABLET)
     Route: 048
  83. QUETIAPINE [Interacting]
     Active Substance: QUETIAPINE
     Indication: Psychotic disorder
     Dosage: 300 MILLIGRAM, UNK (FILM COATED TABLET)
     Route: 048
  84. QUETIAPINE [Interacting]
     Active Substance: QUETIAPINE
     Indication: Stress
     Dosage: UNK, TABLET
     Route: 048
  85. QUETIAPINE [Interacting]
     Active Substance: QUETIAPINE
     Dosage: UNK
     Route: 065
  86. QUETIAPINE [Interacting]
     Active Substance: QUETIAPINE
     Dosage: UNK
     Route: 048
  87. PAROXETINE HYDROCHLORIDE [Interacting]
     Active Substance: PAROXETINE HYDROCHLORIDE
     Indication: Depression
     Dosage: 20 MILLIGRAM, THREE TIMES PER DAY
     Route: 048
  88. PAROXETINE HYDROCHLORIDE [Interacting]
     Active Substance: PAROXETINE HYDROCHLORIDE
     Dosage: 20 MG,THREE TIMES PER DAY (60 MG DAILY)
     Route: 048
     Dates: start: 19990801, end: 201105
  89. PAROXETINE HYDROCHLORIDE [Interacting]
     Active Substance: PAROXETINE HYDROCHLORIDE
     Dosage: 40 MILLIGRAM PER DAY
     Route: 048
  90. PAROXETINE HYDROCHLORIDE [Interacting]
     Active Substance: PAROXETINE HYDROCHLORIDE
     Dosage: UNK, TABLET
     Route: 048
  91. PAROXETINE HYDROCHLORIDE [Interacting]
     Active Substance: PAROXETINE HYDROCHLORIDE
     Dosage: 180 MILLIGRAM PER DAY
     Route: 048
  92. PAROXETINE HYDROCHLORIDE [Interacting]
     Active Substance: PAROXETINE HYDROCHLORIDE
     Dosage: 60 MILLIGRAM , INTERRUPTED
     Route: 048
  93. PAROXETINE HYDROCHLORIDE [Interacting]
     Active Substance: PAROXETINE HYDROCHLORIDE
     Dosage: 1 DOSAGE FORM, QD
     Route: 048
  94. PAROXETINE HYDROCHLORIDE [Interacting]
     Active Substance: PAROXETINE HYDROCHLORIDE
     Dosage: 20 MILLIGRAM, BID
     Route: 048
  95. PAROXETINE HYDROCHLORIDE [Interacting]
     Active Substance: PAROXETINE HYDROCHLORIDE
     Dosage: 40 MILLIGRAM; PER DAY
     Route: 048
  96. PAROXETINE HYDROCHLORIDE [Interacting]
     Active Substance: PAROXETINE HYDROCHLORIDE
     Dosage: UNK, QD (TABLET)
     Route: 048
  97. PAROXETINE HYDROCHLORIDE [Interacting]
     Active Substance: PAROXETINE HYDROCHLORIDE
     Dosage: 1 UNK, PER DAY (INTERUPTED)
     Route: 048
  98. CODEINE [Interacting]
     Active Substance: CODEINE
     Indication: Analgesic therapy
     Dosage: UNK
     Route: 048
  99. CODEINE [Interacting]
     Active Substance: CODEINE
     Indication: Serotonin syndrome
     Dosage: UNK
     Route: 048
  100. CODEINE [Interacting]
     Active Substance: CODEINE
     Dosage: UNK, EVERY 24 HOURS, UNSURE,
     Route: 048
  101. CODEINE [Interacting]
     Active Substance: CODEINE
     Dosage: UNK, 15-30 MG
     Route: 048
  102. CODEINE [Interacting]
     Active Substance: CODEINE
     Dosage: UNK
     Route: 048
  103. PAROXETINE [Interacting]
     Active Substance: PAROXETINE
     Indication: Depression
     Dosage: 40 MILLIGRAM, QD
     Route: 048
  104. PAROXETINE [Interacting]
     Active Substance: PAROXETINE
     Indication: Post-traumatic stress disorder
     Dosage: 40 MILLIGRAM, CUMULATIVE DOSE TO FIRST REACTION: 166841.7 MG
     Route: 048
  105. PAROXETINE [Interacting]
     Active Substance: PAROXETINE
     Dosage: 60 MILLIGRAM PER DAY, (20 MG THREE TIMES A DAY
     Route: 048
  106. PAROXETINE [Interacting]
     Active Substance: PAROXETINE
     Dosage: UNK (TABLET)
     Route: 048
     Dates: start: 1996
  107. PAROXETINE [Interacting]
     Active Substance: PAROXETINE
     Dosage: UNK, TABLET
     Route: 065
  108. PAROXETINE [Interacting]
     Active Substance: PAROXETINE
     Dosage: 20 MILLIGRAM, TID, CUMULATIVE DOSE: (74942.5 MG)
     Route: 048
  109. PAROXETINE [Interacting]
     Active Substance: PAROXETINE
     Dosage: 40 MILLIGRAM, QD, (FILM COATED TABLET), QD
     Route: 048
  110. PAROXETINE [Interacting]
     Active Substance: PAROXETINE
     Dosage: UNK, (FILM COATED TABLET)
     Route: 048
  111. PHOSPHORUS [Interacting]
     Active Substance: PHOSPHORUS
     Indication: Product used for unknown indication
     Dosage: UNK
     Route: 065

REACTIONS (95)
  - Neuroleptic malignant syndrome [Unknown]
  - Nightmare [Unknown]
  - Swollen tongue [Unknown]
  - Aphasia [Not Recovered/Not Resolved]
  - Suicidal ideation [Not Recovered/Not Resolved]
  - Dystonia [Unknown]
  - Feeling of body temperature change [Unknown]
  - Skin discolouration [Not Recovered/Not Resolved]
  - Premature labour [Not Recovered/Not Resolved]
  - Paraesthesia [Unknown]
  - Contusion [Not Recovered/Not Resolved]
  - Paralysis [Unknown]
  - Hypoaesthesia oral [Not Recovered/Not Resolved]
  - Pallor [Unknown]
  - Muscle disorder [Unknown]
  - Muscle spasms [Not Recovered/Not Resolved]
  - Arthralgia [Unknown]
  - Serotonin syndrome [Not Recovered/Not Resolved]
  - Musculoskeletal stiffness [Not Recovered/Not Resolved]
  - Heart rate increased [Unknown]
  - Pyrexia [Unknown]
  - Balance disorder [Unknown]
  - Gait disturbance [Unknown]
  - Hyperhidrosis [Unknown]
  - Cyanosis [Unknown]
  - Eye pain [Unknown]
  - Delirium [Unknown]
  - Depression [Unknown]
  - Mood swings [Unknown]
  - Dissociation [Not Recovered/Not Resolved]
  - Feeling of despair [Unknown]
  - Emotional disorder [Unknown]
  - Derealisation [Not Recovered/Not Resolved]
  - Dyspnoea [Unknown]
  - Swelling face [Unknown]
  - Incontinence [Not Recovered/Not Resolved]
  - Sensory loss [Unknown]
  - Mania [Unknown]
  - Hypoaesthesia [Not Recovered/Not Resolved]
  - H1N1 influenza [Unknown]
  - Asthenia [Unknown]
  - Tinnitus [Unknown]
  - Hyperhidrosis [Not Recovered/Not Resolved]
  - Decreased appetite [Unknown]
  - Blood sodium decreased [Unknown]
  - Drooling [Unknown]
  - Gastric pH decreased [Unknown]
  - Restless legs syndrome [Not Recovered/Not Resolved]
  - Feeling jittery [Unknown]
  - Parosmia [Unknown]
  - Menstrual disorder [Unknown]
  - Fatigue [Not Recovered/Not Resolved]
  - Speech disorder [Not Recovered/Not Resolved]
  - Pruritus [Unknown]
  - Headache [Unknown]
  - Diarrhoea [Unknown]
  - Dissociation [Not Recovered/Not Resolved]
  - Contusion [Not Recovered/Not Resolved]
  - Depersonalisation/derealisation disorder [Not Recovered/Not Resolved]
  - Sleep disorder [Not Recovered/Not Resolved]
  - Restlessness [Not Recovered/Not Resolved]
  - Drug interaction [Unknown]
  - Mydriasis [Unknown]
  - Urinary retention [Unknown]
  - Anxiety [Unknown]
  - Agitation [Unknown]
  - Disturbance in attention [Unknown]
  - Tachycardia [Unknown]
  - Contusion [Not Recovered/Not Resolved]
  - Seizure [Not Recovered/Not Resolved]
  - Confusional state [Not Recovered/Not Resolved]
  - Dizziness [Unknown]
  - Visual impairment [Unknown]
  - Cogwheel rigidity [Unknown]
  - Muscle rigidity [Unknown]
  - Dizziness [Unknown]
  - Tremor [Not Recovered/Not Resolved]
  - Disorientation [Not Recovered/Not Resolved]
  - Vision blurred [Unknown]
  - Dyskinesia [Unknown]
  - Hallucinations, mixed [Unknown]
  - Drug withdrawal syndrome [Not Recovered/Not Resolved]
  - Psychotic disorder [Recovered/Resolved]
  - Schizophrenia [Unknown]
  - Vomiting [Unknown]
  - Illness [Unknown]
  - Somnolence [Not Recovered/Not Resolved]
  - Maternal exposure during pregnancy [Unknown]
  - Therapeutic product ineffective [Unknown]
  - Drug ineffective [Unknown]
  - Toxicity to various agents [Unknown]
  - Musculoskeletal stiffness [Not Recovered/Not Resolved]
  - Eye pain [Unknown]
  - Limb injury [Unknown]
  - Off label use [Unknown]

NARRATIVE: CASE EVENT DATE: 20030101
